FAERS Safety Report 22934270 (Version 3)
Quarter: 2023Q4

REPORT INFORMATION
  Report Type: Spontaneous
  Country: FR (occurrence: FR)
  Receive Date: 20230912
  Receipt Date: 20231016
  Transmission Date: 20240109
  Serious: Yes (Hospitalization)
  Sender: FDA-Public Use
  Company Number: None

PATIENT
  Age: 78 Year
  Sex: Male
  Weight: 80 kg

DRUGS (40)
  1. CIPROFLOXACIN [Suspect]
     Active Substance: CIPROFLOXACIN
     Indication: Post procedural infection
     Dosage: 1.5 G, QD
     Route: 048
     Dates: start: 20230721, end: 20230803
  2. AMIKACIN [Suspect]
     Active Substance: AMIKACIN
     Indication: Post procedural infection
     Dosage: 2 G, QD
     Route: 042
     Dates: start: 20230716, end: 20230719
  3. METFORMIN [Suspect]
     Active Substance: METFORMIN HYDROCHLORIDE
     Indication: Type 2 diabetes mellitus
     Dosage: 3 G, QD
     Route: 048
     Dates: start: 2007, end: 20230807
  4. TAZOBACTAM [Suspect]
     Active Substance: TAZOBACTAM
     Indication: Post procedural infection
     Dosage: 1.5 G, QD
     Route: 042
     Dates: start: 20230716, end: 20230719
  5. TAZOBACTAM [Suspect]
     Active Substance: TAZOBACTAM
     Indication: Post procedural infection
  6. PIPERACILLIN [Suspect]
     Active Substance: PIPERACILLIN
     Indication: Post procedural infection
     Dosage: 12 G, QD
     Route: 042
     Dates: start: 20230716, end: 20230719
  7. LANSOPRAZOLE [Suspect]
     Active Substance: LANSOPRAZOLE
     Indication: Product used for unknown indication
     Dosage: 30 MG, QD
     Route: 048
     Dates: end: 20230807
  8. LANSOPRAZOLE [Suspect]
     Active Substance: LANSOPRAZOLE
     Indication: Product used for unknown indication
  9. VANCOMYCIN [Suspect]
     Active Substance: VANCOMYCIN
     Indication: Post procedural infection
     Dosage: 2 G, QD
     Dates: start: 20230716, end: 20230727
  10. GABAPENTIN [Suspect]
     Active Substance: GABAPENTIN
     Indication: Neuralgia
     Dosage: 300 MG, QD
     Route: 048
     Dates: start: 202304, end: 20230808
  11. GABAPENTIN [Suspect]
     Active Substance: GABAPENTIN
     Indication: Neuralgia
  12. GABAPENTIN [Suspect]
     Active Substance: GABAPENTIN
     Indication: Neuralgia
  13. SITAGLIPTIN [Concomitant]
     Active Substance: SITAGLIPTIN
  14. SITAGLIPTIN [Concomitant]
     Active Substance: SITAGLIPTIN
  15. SITAGLIPTIN [Concomitant]
     Active Substance: SITAGLIPTIN
  16. LORAZEPAM [Concomitant]
     Active Substance: LORAZEPAM
     Route: 048
  17. LORAZEPAM [Concomitant]
     Active Substance: LORAZEPAM
  18. LORAZEPAM [Concomitant]
     Active Substance: LORAZEPAM
  19. ENOXAPARIN SODIUM [Concomitant]
     Active Substance: ENOXAPARIN SODIUM
  20. TRIMEBUTINE [Concomitant]
     Active Substance: TRIMEBUTINE
  21. TRIMEBUTINE [Concomitant]
     Active Substance: TRIMEBUTINE
  22. TRIMEBUTINE [Concomitant]
     Active Substance: TRIMEBUTINE
  23. AMLODIPINE [Concomitant]
     Active Substance: AMLODIPINE BESYLATE
  24. AMLODIPINE [Concomitant]
     Active Substance: AMLODIPINE BESYLATE
  25. AMLODIPINE [Concomitant]
     Active Substance: AMLODIPINE BESYLATE
  26. PERINDOPRIL [Concomitant]
     Active Substance: PERINDOPRIL
  27. PERINDOPRIL [Concomitant]
     Active Substance: PERINDOPRIL
  28. PERINDOPRIL [Concomitant]
     Active Substance: PERINDOPRIL
  29. GLICLAZIDE [Concomitant]
     Active Substance: GLICLAZIDE
  30. GLICLAZIDE [Concomitant]
     Active Substance: GLICLAZIDE
  31. GLICLAZIDE [Concomitant]
     Active Substance: GLICLAZIDE
  32. NEBIVOLOL [Concomitant]
     Active Substance: NEBIVOLOL
  33. NEBIVOLOL [Concomitant]
     Active Substance: NEBIVOLOL
  34. NEBIVOLOL [Concomitant]
     Active Substance: NEBIVOLOL
  35. ASPIRIN [Concomitant]
     Active Substance: ASPIRIN
  36. ACARBOSE [Concomitant]
     Active Substance: ACARBOSE
  37. ACARBOSE [Concomitant]
     Active Substance: ACARBOSE
  38. ACARBOSE [Concomitant]
     Active Substance: ACARBOSE
  39. ASPIRIN [Concomitant]
     Active Substance: ASPIRIN
  40. ENOXAPARIN SODIUM [Concomitant]
     Active Substance: ENOXAPARIN SODIUM

REACTIONS (2)
  - Diarrhoea [Recovering/Resolving]
  - Hypokalaemia [Recovering/Resolving]

NARRATIVE: CASE EVENT DATE: 20230724
